FAERS Safety Report 8326589-8 (Version None)
Quarter: 2012Q2

REPORT INFORMATION
  Report Type: 
  Country: None (occurrence: None)
  Receive Date: 20120501
  Receipt Date: 20110826
  Transmission Date: 20120825
  Serious: Yes (Other)
  Sender: FDA-Public Use
  Company Number: US-SANOFI-AVENTIS-2011SA042782

PATIENT
  Age: 51 Year
  Sex: Female

DRUGS (1)
  1. APIDRA [Suspect]
     Dosage: EVERY MORNING DOSE:8 UNIT(S)
     Route: 065
     Dates: start: 20100101

REACTIONS (3)
  - PRODUCT QUALITY ISSUE [None]
  - BLOOD GLUCOSE DECREASED [None]
  - HYPOGLYCAEMIA [None]
